FAERS Safety Report 9764041 (Version 1)
Quarter: 2013Q4

REPORT INFORMATION
  Report Type: Spontaneous
  Country: JP (occurrence: JP)
  Receive Date: 20131216
  Receipt Date: 20131216
  Transmission Date: 20140711
  Serious: Yes (Other)
  Sender: FDA-Public Use
  Company Number: JP-US-EMD SERONO, INC.-7257453

PATIENT
  Age: 39 Year
  Sex: Female

DRUGS (2)
  1. SEROPHENE [Suspect]
     Indication: OVULATION INDUCTION
     Route: 048
     Dates: start: 200412
  2. HCG [Concomitant]
     Indication: OVULATION INDUCTION
     Route: 030
     Dates: start: 200412

REACTIONS (2)
  - Benign hydatidiform mole [Recovered/Resolved]
  - Choriocarcinoma [Unknown]
